FAERS Safety Report 25089641 (Version 1)
Quarter: 2025Q1

REPORT INFORMATION
  Report Type: Report from Study
  Country: FR (occurrence: FR)
  Receive Date: 20250318
  Receipt Date: 20250318
  Transmission Date: 20250408
  Serious: Yes (Other)
  Sender: PFIZER
  Company Number: FR-GSK-FR2025GSK025658

PATIENT
  Sex: Female

DRUGS (8)
  1. CARBOPLATIN [Suspect]
     Active Substance: CARBOPLATIN
     Indication: Endometrial cancer recurrent
     Dates: start: 20241122
  2. PACLITAXEL [Suspect]
     Active Substance: PACLITAXEL
     Indication: Endometrial cancer recurrent
     Dates: start: 20241122
  3. DOSTARLIMAB [Suspect]
     Active Substance: DOSTARLIMAB
     Indication: Endometrial cancer recurrent
     Dates: start: 20241122
  4. ONDANSETRON [Concomitant]
     Active Substance: ONDANSETRON
  5. KYTRIL [Concomitant]
     Active Substance: GRANISETRON HYDROCHLORIDE
  6. APREPITANT [Concomitant]
     Active Substance: APREPITANT
  7. METHYLPREDNISOLONE [Concomitant]
     Active Substance: METHYLPREDNISOLONE
  8. BETAMETHASONE [Concomitant]
     Active Substance: BETAMETHASONE

REACTIONS (1)
  - Erythema [Unknown]
